FAERS Safety Report 8363730-5 (Version None)
Quarter: 2012Q2

REPORT INFORMATION
  Report Type: 
  Country: None (occurrence: None)
  Receive Date: 20120516
  Receipt Date: 20120507
  Transmission Date: 20120825
  Serious: Yes (Other)
  Sender: FDA-Public Use
  Company Number: BR-JNJFOC-20120508863

PATIENT
  Age: 26 Year
  Sex: Female

DRUGS (2)
  1. OXYBUTYNIN [Suspect]
     Indication: URINARY INCONTINENCE
     Route: 065
     Dates: start: 20030101, end: 20120503
  2. ORTHO EVRA [Suspect]
     Indication: CONTRACEPTION
     Route: 062
     Dates: start: 20110101, end: 20120301

REACTIONS (4)
  - VAGINAL HAEMORRHAGE [None]
  - PREGNANCY WITH CONTRACEPTIVE PATCH [None]
  - MATERNAL EXPOSURE DURING PREGNANCY [None]
  - DRUG DOSE OMISSION [None]
